FAERS Safety Report 7364664-5 (Version None)
Quarter: 2011Q1

REPORT INFORMATION
  Report Type: 
  Country: None (occurrence: None)
  Receive Date: 20110321
  Receipt Date: 20110316
  Transmission Date: 20110831
  Serious: Yes (Other)
  Sender: FDA-Public Use
  Company Number: US-PFIZER INC-2011056067

PATIENT
  Sex: Female

DRUGS (2)
  1. NEURONTIN [Suspect]
     Indication: NEUROPATHY PERIPHERAL
     Dosage: UNK
     Route: 048
  2. NEURONTIN [Suspect]
     Indication: NEURALGIA
     Dosage: UNK
     Route: 048

REACTIONS (3)
  - MEMORY IMPAIRMENT [None]
  - CATARACT [None]
  - NERVOUSNESS [None]
